FAERS Safety Report 25207395 (Version 1)
Quarter: 2025Q2

REPORT INFORMATION
  Report Type: Spontaneous
  Country: CN (occurrence: CN)
  Receive Date: 20250417
  Receipt Date: 20250417
  Transmission Date: 20250717
  Serious: Yes (Hospitalization)
  Sender: ACCORD
  Company Number: None

PATIENT
  Age: 34 Year
  Sex: Female
  Weight: 60 kg

DRUGS (4)
  1. TRASTUZUMAB [Suspect]
     Active Substance: TRASTUZUMAB
     Indication: Breast cancer stage II
     Dosage: 480 MILLIGRAM, QD, IV DRIP, STRENGTH: 150 MG
     Route: 042
     Dates: start: 20250218, end: 20250218
  2. DOCETAXEL [Suspect]
     Active Substance: DOCETAXEL
     Indication: Breast cancer stage II
     Dosage: 115 MILLIGRAM, QD, IV DRIP
     Route: 042
     Dates: start: 20250218, end: 20250219
  3. CARBOPLATIN [Suspect]
     Active Substance: CARBOPLATIN
     Indication: Breast cancer stage II
     Dosage: 540 MILLIGRAM, QD, IV DRIP
     Route: 042
     Dates: start: 20250218, end: 20250219
  4. PYROTINIB [Suspect]
     Active Substance: PYROTINIB
     Indication: Breast cancer stage II
     Dosage: 115 MILLIGRAM, QD
     Route: 048
     Dates: start: 20250217, end: 20250217

REACTIONS (1)
  - Drug-induced liver injury [Recovering/Resolving]

NARRATIVE: CASE EVENT DATE: 20250228
